FAERS Safety Report 25251614 (Version 2)
Quarter: 2025Q2

REPORT INFORMATION
  Report Type: Spontaneous
  Country: US (occurrence: US)
  Receive Date: 20250429
  Receipt Date: 20250501
  Transmission Date: 20250717
  Serious: No
  Sender: PURDUE
  Company Number: US-PURDUE PHARMA-USA-2025-0317097

PATIENT
  Sex: Female

DRUGS (1)
  1. OXYCODONE HYDROCHLORIDE [Suspect]
     Active Substance: OXYCODONE HYDROCHLORIDE
     Indication: Pain
     Dosage: 10 MILLIGRAM, QID (FOUR TABLETS DAILY)
     Route: 048

REACTIONS (4)
  - Drug screen negative [Unknown]
  - Incorrect dose administered [Unknown]
  - Therapeutic response decreased [Unknown]
  - Somnolence [Unknown]
